FAERS Safety Report 5086200-9 (Version None)
Quarter: 2006Q3

REPORT INFORMATION
  Report Type: 
  Country: None (occurrence: None)
  Receive Date: 20060818
  Receipt Date: 20060807
  Transmission Date: 20061208
  Serious: Yes (Death)
  Sender: FDA-Public Use
  Company Number: 2006JP000826

PATIENT
  Age: 24 Year
  Sex: Female
  Weight: 40 kg

DRUGS (14)
  1. FUNGUARD [Suspect]
     Indication: PNEUMONIA FUNGAL
     Dosage: 50 + 100 + 150MG, UID/QD, IV DRIP
     Route: 041
     Dates: start: 20051012, end: 20051014
  2. FUNGUARD [Suspect]
     Indication: PNEUMONIA FUNGAL
     Dosage: 50 + 100 + 150MG, UID/QD, IV DRIP
     Route: 041
     Dates: start: 20051015, end: 20051025
  3. FUNGUARD [Suspect]
     Indication: PNEUMONIA FUNGAL
     Dosage: 50 + 100 + 150MG, UID/QD, IV DRIP
     Route: 041
     Dates: start: 20051026, end: 20051027
  4. BACTRAMIN            (SULFAMETHOXAZ, TRIMETHOPRIM) [Suspect]
     Dosage: 240 MG, UNKNOWN/D, UNKNOWN
     Dates: start: 20051013, end: 20051017
  5. BENAMBAX(PENTAMIDINE) INJECTION [Suspect]
     Dosage: 200 MG, UNKNOWN/D, UNKNOWN
     Dates: start: 20051018
  6. TIENAM                               (IMPIPENEM, CILASTATIN) INJECTION [Concomitant]
  7. DALACIN                   (CLINDAMYCIN HYDROCHLORIDE) INJECTION [Concomitant]
  8. FOSCAVIR [Concomitant]
  9. OXYCONTIN            (OXYCODONE HYDROCHLORIDE) TABLET [Concomitant]
  10. OMEPRAZON (OMEPRAZOLE) TABLET [Concomitant]
  11. LASIX                  (FUROSEMIDE) PER ORAL NOS [Concomitant]
  12. PREDNISOLONE [Concomitant]
  13. LOPEMIN                (LOPERAMIDE HYDROCHLORIDE) CAPSULE [Concomitant]
  14. MEROPEN                        (MEROPENEM) INJECTION [Concomitant]

REACTIONS (3)
  - BLOOD ALKALINE PHOSPHATASE INCREASED [None]
  - BLOOD UREA INCREASED [None]
  - LEUKAEMIA [None]
